FAERS Safety Report 6847221-6 (Version None)
Quarter: 2010Q3

REPORT INFORMATION
  Report Type: 
  Country: None (occurrence: None)
  Receive Date: 20100716
  Receipt Date: 20100706
  Transmission Date: 20110219
  Serious: Yes (Death, Hospitalization)
  Sender: FDA-Public Use
  Company Number: DE-ELI_LILLY_AND_COMPANY-DE201007000847

PATIENT
  Sex: Male

DRUGS (3)
  1. FORTEO [Suspect]
     Indication: OSTEOPOROSIS
     Dosage: UNK, DAILY (1/D)
     Route: 058
     Dates: start: 20090325, end: 20100401
  2. CALCIUM [Concomitant]
     Dosage: UNK, UNKNOWN
     Route: 065
  3. VITAMIN D [Concomitant]
     Dosage: UNK, UNKNOWN
     Route: 065

REACTIONS (8)
  - ABDOMINAL PAIN UPPER [None]
  - CARDIOVASCULAR INSUFFICIENCY [None]
  - HEPATIC PAIN [None]
  - HEPATOMEGALY [None]
  - HOSPITALISATION [None]
  - NAUSEA [None]
  - ORGAN FAILURE [None]
  - VOMITING [None]
